FAERS Safety Report 14768086 (Version 1)
Quarter: 2018Q2

REPORT INFORMATION
  Report Type: Spontaneous
  Country: FI (occurrence: FI)
  Receive Date: 20180417
  Receipt Date: 20180417
  Transmission Date: 20180711
  Serious: Yes (Life-Threatening)
  Sender: FDA-Public Use
  Company Number: FI-TEVA-2018-FI-881307

PATIENT
  Age: 72 Year
  Sex: Male

DRUGS (7)
  1. ATIVAN [Concomitant]
     Active Substance: LORAZEPAM
  2. KLEXANE [Concomitant]
     Active Substance: ENOXAPARIN
     Dosage: 80,MG,DAILY
     Route: 058
  3. DEXDOR [Suspect]
     Active Substance: DEXMEDETOMIDINE HYDROCHLORIDE
     Indication: SEDATION
     Dates: start: 20170501, end: 20170501
  4. SERENASE (HALOPERIDOL) [Concomitant]
     Active Substance: HALOPERIDOL
  5. ZINACEF [Concomitant]
     Active Substance: CEFUROXIME SODIUM
     Dosage: 6,G,DAILY
  6. CATAPRESAN [Suspect]
     Active Substance: CLONIDINE
     Dates: start: 20170428
  7. AMLODIPINE [Suspect]
     Active Substance: AMLODIPINE BESYLATE
     Dosage: 10 MILLIGRAM DAILY; 10,MG,DAILY
     Dates: start: 20170428

REACTIONS (2)
  - Bradycardia [Recovered/Resolved]
  - Cardiac arrest [Recovered/Resolved]

NARRATIVE: CASE EVENT DATE: 20170501
